FAERS Safety Report 13225238 (Version 1)
Quarter: 2017Q1

REPORT INFORMATION
  Report Type: Spontaneous
  Country: US (occurrence: US)
  Receive Date: 20170210
  Receipt Date: 20170210
  Transmission Date: 20170428
  Serious: Yes (Disabling)
  Sender: FDA-Public Use
  Company Number: None

PATIENT
  Age: 91 Year
  Sex: Female
  Weight: 58.5 kg

DRUGS (7)
  1. LORAZEPAM. [Concomitant]
     Active Substance: LORAZEPAM
  2. FISH OIL [Concomitant]
     Active Substance: FISH OIL
  3. METOPROLOL. [Concomitant]
     Active Substance: METOPROLOL
  4. CALCIUM [Concomitant]
     Active Substance: CALCIUM
  5. ZETIA [Concomitant]
     Active Substance: EZETIMIBE
  6. PROLIA [Suspect]
     Active Substance: DENOSUMAB
     Indication: OSTEOPENIA
     Dosage: ?          OTHER FREQUENCY:EVERY 6 MONTHS;?
     Route: 058
  7. MIRTAZAPINE. [Concomitant]
     Active Substance: MIRTAZAPINE

REACTIONS (3)
  - Gait disturbance [None]
  - Pain in extremity [None]
  - Arthralgia [None]

NARRATIVE: CASE EVENT DATE: 20170121
